FAERS Safety Report 18813710 (Version 1)
Quarter: 2021Q1

REPORT INFORMATION
  Report Type: Spontaneous
  Country: US (occurrence: US)
  Receive Date: 20210201
  Receipt Date: 20210201
  Transmission Date: 20210419
  Serious: Yes (Other)
  Sender: FDA-Public Use
  Company Number: US-HIKMA PHARMACEUTICALS USA INC.-US-H14001-21-00444

PATIENT
  Age: 68 Year
  Sex: Female

DRUGS (4)
  1. VENLAFAXINE [Concomitant]
     Active Substance: VENLAFAXINE HYDROCHLORIDE
     Indication: CHARLES BONNET SYNDROME
     Dosage: UNKNOWN
     Route: 065
  2. ACETAZOLAMIDE. [Suspect]
     Active Substance: ACETAZOLAMIDE
     Indication: GLAUCOMA
     Route: 065
  3. GABAPENTIN. [Concomitant]
     Active Substance: GABAPENTIN
     Indication: CHARLES BONNET SYNDROME
     Dosage: UNKNOWN
     Route: 065
  4. QUETIAPINE. [Concomitant]
     Active Substance: QUETIAPINE
     Indication: CHARLES BONNET SYNDROME
     Dosage: UNKNOWN
     Route: 065

REACTIONS (3)
  - Delusion [Recovered/Resolved]
  - Paraesthesia [Recovered/Resolved]
  - Hallucination, visual [Recovered/Resolved]
